FAERS Safety Report 5391856-7 (Version None)
Quarter: 2007Q3

REPORT INFORMATION
  Report Type: 
  Country: None (occurrence: None)
  Receive Date: 20070718
  Receipt Date: 20070709
  Transmission Date: 20080115
  Serious: Yes (Death, Hospitalization)
  Sender: FDA-Public Use
  Company Number: 2007BI014585

PATIENT
  Age: 71 Year
  Sex: Male

DRUGS (8)
  1. NATALIZUMAB [Suspect]
     Indication: MULTIPLE SCLEROSIS
     Dosage: 300 MG; QM; IV
     Route: 042
     Dates: start: 20061023, end: 20070702
  2. PRINIVIL [Concomitant]
  3. PROSCAR [Concomitant]
  4. ZOCOR [Concomitant]
  5. ECOTRIN [Concomitant]
  6. FLOMAX [Concomitant]
  7. LOPRESSOR [Concomitant]
  8. OXYBUTYNIN CHLORIDE [Concomitant]

REACTIONS (3)
  - MYOCARDIAL INFARCTION [None]
  - PNEUMONIA [None]
  - STAPHYLOCOCCAL INFECTION [None]
